FAERS Safety Report 7430985-0 (Version None)
Quarter: 2011Q2

REPORT INFORMATION
  Report Type: 
  Country: None (occurrence: None)
  Receive Date: 20110419
  Receipt Date: 20110419
  Transmission Date: 20111010
  Serious: Yes (Death)
  Sender: FDA-Public Use
  Company Number: None

PATIENT
  Age: 72 Year
  Sex: Female

DRUGS (13)
  1. SENNA [Concomitant]
  2. LORAZEPAM [Concomitant]
  3. DEXAMETHASONE [Concomitant]
  4. DOCUSATE [Concomitant]
  5. MIRTAZAPINE [Concomitant]
  6. REVLIMID [Suspect]
     Indication: MULTIPLE MYELOMA
     Dosage: REVLIMID 10 MG CELGENE ORALLY
     Route: 048
     Dates: start: 20101101
  7. REVLIMID [Suspect]
     Indication: MULTIPLE MYELOMA
     Dosage: REVLIMID 10 MG CELGENE ORALLY
     Route: 048
     Dates: start: 20100201, end: 20100701
  8. METHADONE [Concomitant]
  9. PROCHLORPERAZINE TAB [Concomitant]
  10. OMEPRAZOLE [Concomitant]
  11. ASPIRIN [Concomitant]
  12. LACULOSE [Concomitant]
  13. HALOPERIDOLE [Concomitant]

REACTIONS (2)
  - MULTIPLE MYELOMA [None]
  - DISEASE PROGRESSION [None]
